FAERS Safety Report 5959687-4 (Version None)
Quarter: 2008Q4

REPORT INFORMATION
  Report Type: 
  Country: None (occurrence: None)
  Receive Date: 20081120
  Receipt Date: 20081106
  Transmission Date: 20090506
  Serious: Yes (Hospitalization)
  Sender: FDA-Public Use
  Company Number: IT-ELI_LILLY_AND_COMPANY-IT200811001527

PATIENT
  Sex: Female

DRUGS (6)
  1. GEMZAR [Suspect]
     Indication: LUNG ADENOCARCINOMA METASTATIC
     Dosage: 1200 MG/M2, PER CYCLE
     Route: 042
     Dates: start: 20080908, end: 20080101
  2. GEMZAR [Suspect]
     Dosage: 1200 MG/M2,  PER CYCLE
     Route: 042
     Dates: start: 20080101
  3. CISPLATIN [Concomitant]
     Indication: LUNG ADENOCARCINOMA METASTATIC
     Dosage: 70 MG/M2, PER CYCLE
     Route: 042
     Dates: start: 20080908, end: 20080101
  4. CISPLATIN [Concomitant]
     Dosage: 70 MG/M2, PER CYCLE
     Route: 042
     Dates: start: 20080101
  5. OXYCONTIN [Concomitant]
     Dosage: 20 MG, UNKNOWN
     Route: 048
  6. DECADRON [Concomitant]
     Dosage: 16 MG, UNKNOWN
     Route: 030

REACTIONS (3)
  - ECCHYMOSIS [None]
  - FILARIASIS [None]
  - PETECHIAE [None]
